FAERS Safety Report 7052489-X (Version None)
Quarter: 2010Q4

REPORT INFORMATION
  Report Type: 
  Country: None (occurrence: None)
  Receive Date: 20101014
  Receipt Date: 20101007
  Transmission Date: 20110411
  Serious: Yes (Other)
  Sender: FDA-Public Use
  Company Number: DSA_43962_2010

PATIENT
  Sex: Female

DRUGS (16)
  1. XENAZINE [Suspect]
     Indication: HUNTINGTON'S DISEASE
     Dosage: SEE IMAGE ORAL
     Route: 048
     Dates: start: 20100101, end: 20100705
  2. XENAZINE [Suspect]
     Indication: TARDIVE DYSKINESIA
     Dosage: SEE IMAGE ORAL
     Route: 048
     Dates: start: 20100101, end: 20100705
  3. XENAZINE [Suspect]
     Indication: HUNTINGTON'S DISEASE
     Dosage: SEE IMAGE ORAL
     Route: 048
     Dates: start: 20100706, end: 20100809
  4. XENAZINE [Suspect]
     Indication: TARDIVE DYSKINESIA
     Dosage: SEE IMAGE ORAL
     Route: 048
     Dates: start: 20100706, end: 20100809
  5. XENAZINE [Suspect]
     Indication: HUNTINGTON'S DISEASE
     Dosage: SEE IMAGE ORAL
     Route: 048
     Dates: start: 20100801, end: 20100913
  6. XENAZINE [Suspect]
     Indication: TARDIVE DYSKINESIA
     Dosage: SEE IMAGE ORAL
     Route: 048
     Dates: start: 20100801, end: 20100913
  7. ABILIFY [Concomitant]
  8. BUSPIRONE HCL [Concomitant]
  9. RITALIN [Concomitant]
  10. LORAZEPAM [Concomitant]
  11. VITAMIN D3 [Concomitant]
  12. FISH OIL [Concomitant]
  13. BENADRYL [Concomitant]
  14. FLAXSEED OIL [Concomitant]
  15. MULTI-VITAMINS [Concomitant]
  16. METFORMIN HCL [Concomitant]

REACTIONS (3)
  - DEPRESSION [None]
  - INSOMNIA [None]
  - PSYCHOTIC DISORDER [None]
